FAERS Safety Report 6767321-9 (Version None)
Quarter: 2010Q2

REPORT INFORMATION
  Report Type: 
  Country: None (occurrence: None)
  Receive Date: 20100611
  Receipt Date: 20100611
  Transmission Date: 20101027
  Serious: Yes (Other)
  Sender: FDA-Public Use
  Company Number: None

PATIENT
  Age: 41 Year
  Sex: Female
  Weight: 56.246 kg

DRUGS (7)
  1. CYMBALTA [Suspect]
     Indication: PAIN MANAGEMENT
     Dosage: 120, THEN 60, THEN 30 WEANED ONCE PER DAY PO
     Route: 048
     Dates: start: 20100110, end: 20100606
  2. LEVOCARNITINE [Concomitant]
  3. SYNTHROID [Concomitant]
  4. HYDROCODONE BITARTRATE [Concomitant]
  5. VITAMIN B COMPLEX CAP [Concomitant]
  6. VIT C [Concomitant]
  7. VITAMIN B-12 [Concomitant]

REACTIONS (11)
  - AFFECT LABILITY [None]
  - BALANCE DISORDER [None]
  - DIZZINESS [None]
  - DRUG INEFFECTIVE [None]
  - FEELING ABNORMAL [None]
  - HEADACHE [None]
  - HYPOAESTHESIA [None]
  - IMPAIRED WORK ABILITY [None]
  - NAUSEA [None]
  - TRANSIENT ISCHAEMIC ATTACK [None]
  - WITHDRAWAL SYNDROME [None]
